FAERS Safety Report 13282159 (Version 1)
Quarter: 2017Q1

REPORT INFORMATION
  Report Type: Spontaneous
  Country: US (occurrence: US)
  Receive Date: 20170301
  Receipt Date: 20170301
  Transmission Date: 20170428
  Serious: No
  Sender: FDA-Public Use
  Company Number: US-MYLANLABS-2016M1002767

PATIENT
  Sex: Female
  Weight: 102.4 kg

DRUGS (1)
  1. METFORMIN [Suspect]
     Active Substance: METFORMIN HYDROCHLORIDE
     Indication: DIARRHOEA
     Dosage: UNK

REACTIONS (1)
  - Diarrhoea [Recovered/Resolved]
